FAERS Safety Report 20161265 (Version 2)
Quarter: 2021Q4

REPORT INFORMATION
  Report Type: Report from Study
  Country: GB (occurrence: GB)
  Receive Date: 20211208
  Receipt Date: 20211216
  Transmission Date: 20220303
  Serious: Yes (Death)
  Sender: FDA-Public Use
  Company Number: GB-BoehringerIngelheim-2021-BI-142027

PATIENT
  Age: 85 Year
  Sex: Female
  Weight: 62 kg

DRUGS (11)
  1. TENECTEPLASE [Suspect]
     Active Substance: TENECTEPLASE
     Indication: Ischaemic stroke
     Route: 042
     Dates: start: 20211130
  2. FLUCLOXACILLIN [Concomitant]
     Active Substance: FLUCLOXACILLIN
     Indication: Product used for unknown indication
     Dosage: QDS
     Route: 042
     Dates: start: 20211130, end: 20211130
  3. GENTAMICIN [Concomitant]
     Active Substance: GENTAMICIN
     Indication: Product used for unknown indication
     Dosage: QDS
     Route: 042
     Dates: start: 20211130, end: 20211130
  4. METRONIDAZOLE [Concomitant]
     Active Substance: METRONIDAZOLE
     Indication: Product used for unknown indication
     Dosage: 5.00 MG TDS
     Route: 042
     Dates: start: 20211130, end: 20211130
  5. ATORVASTATIN [Concomitant]
     Active Substance: ATORVASTATIN
     Indication: Product used for unknown indication
     Dosage: 5.00 MG TDS
     Route: 048
     Dates: start: 20140515, end: 20211130
  6. ASPIRIN [Concomitant]
     Active Substance: ASPIRIN
     Indication: Product used for unknown indication
     Dosage: 5.00 MG TDS
     Route: 048
     Dates: start: 20120206, end: 20211130
  7. OMEPRAZOLE [Concomitant]
     Active Substance: OMEPRAZOLE
     Indication: Product used for unknown indication
     Route: 048
     Dates: start: 20111222, end: 20211130
  8. BISOPROLOL [Concomitant]
     Active Substance: BISOPROLOL
     Indication: Product used for unknown indication
     Route: 048
     Dates: start: 20130429, end: 20211130
  9. ALENDRONIC ACID [Concomitant]
     Active Substance: ALENDRONIC ACID
     Indication: Product used for unknown indication
     Route: 048
     Dates: start: 20210316, end: 20211130
  10. AMLODIPINE [Concomitant]
     Active Substance: AMLODIPINE BESYLATE
     Indication: Product used for unknown indication
     Route: 048
     Dates: start: 20210607, end: 20211130
  11. NITROGLYCERIN [Concomitant]
     Active Substance: NITROGLYCERIN
     Indication: Product used for unknown indication
     Route: 048
     Dates: start: 20160608, end: 20211130

REACTIONS (7)
  - General physical health deterioration [Fatal]
  - Sepsis [Fatal]
  - Osteomyelitis [Fatal]
  - Haemorrhage intracranial [Fatal]
  - Thrombolysis [Fatal]
  - Arthritis bacterial [Fatal]
  - Cerebrovascular accident [Fatal]

NARRATIVE: CASE EVENT DATE: 20211130
